FAERS Safety Report 11055325 (Version 1)
Quarter: 2015Q2

REPORT INFORMATION
  Report Type: Spontaneous
  Country: VN (occurrence: VN)
  Receive Date: 20150422
  Receipt Date: 20150422
  Transmission Date: 20150821
  Serious: Yes (Hospitalization, Other)
  Sender: FDA-Public Use
  Company Number: VN-009507513-1504VNM014725

PATIENT
  Sex: Male
  Weight: 55 kg

DRUGS (2)
  1. GLUCOBAY [Suspect]
     Active Substance: ACARBOSE
     Dosage: 100 MG, QD(IN THE AFTERNOON)
     Dates: start: 201408
  2. JANUVIA [Suspect]
     Active Substance: SITAGLIPTIN PHOSPHATE
     Dosage: 1 DF, QD
     Route: 048
     Dates: start: 20140801, end: 20150304

REACTIONS (3)
  - Hyperglycaemia [Recovering/Resolving]
  - Hypertension [Recovering/Resolving]
  - Cerebrovascular accident [Recovering/Resolving]
